FAERS Safety Report 8541369-6 (Version None)
Quarter: 2012Q3

REPORT INFORMATION
  Report Type: 
  Country: None (occurrence: None)
  Receive Date: 20120726
  Receipt Date: 20111205
  Transmission Date: 20120928
  Serious: No
  Sender: FDA-Public Use
  Company Number: US-MYLANLABS-2011S1025115

PATIENT
  Age: 47 Year
  Sex: Female

DRUGS (1)
  1. PAROXETINE HCL [Suspect]
     Indication: ANXIETY
     Route: 048
     Dates: start: 20111201, end: 20111203

REACTIONS (3)
  - DYSPEPSIA [None]
  - NAUSEA [None]
  - MIGRAINE [None]
